FAERS Safety Report 23858271 (Version 1)
Quarter: 2024Q2

REPORT INFORMATION
  Report Type: Spontaneous
  Country: US (occurrence: US)
  Receive Date: 20240515
  Receipt Date: 20240515
  Transmission Date: 20240716
  Serious: No
  Sender: FDA-Public Use
  Company Number: US-PFIZER INC-PV202400062631

PATIENT

DRUGS (2)
  1. SPIRONOLACTONE [Suspect]
     Active Substance: SPIRONOLACTONE
     Indication: Myocardial infarction
     Dosage: UNK
  2. ENTRESTO [Suspect]
     Active Substance: SACUBITRIL\VALSARTAN
     Indication: Myocardial infarction
     Dosage: UNK

REACTIONS (4)
  - Dizziness [Unknown]
  - Blood pressure decreased [Unknown]
  - Gait disturbance [Unknown]
  - Feeling abnormal [Unknown]
